FAERS Safety Report 4592604-0 (Version None)
Quarter: 2005Q1

REPORT INFORMATION
  Report Type: 
  Country: None (occurrence: None)
  Receive Date: 20050222
  Receipt Date: 20050209
  Transmission Date: 20050727
  Serious: Yes (Other)
  Sender: FDA-Public Use
  Company Number: DE-2005-001895

PATIENT
  Sex: Female

DRUGS (1)
  1. MIRENA [Suspect]
     Indication: MENORRHAGIA
     Dosage: 20 UG/DAY, CONT, INTRA-UTERINE
     Route: 015
     Dates: start: 20041201

REACTIONS (5)
  - AORTIC STENOSIS [None]
  - CARDIAC DISORDER [None]
  - CONDITION AGGRAVATED [None]
  - DYSPNOEA EXACERBATED [None]
  - HYPERTENSION [None]
